FAERS Safety Report 5799351-8 (Version None)
Quarter: 2008Q3

REPORT INFORMATION
  Report Type: 
  Country: None (occurrence: None)
  Receive Date: 20080702
  Receipt Date: 20080624
  Transmission Date: 20090109
  Serious: Yes (Other)
  Sender: FDA-Public Use
  Company Number: US-PFIZER INC-2008053221

PATIENT
  Sex: Female
  Weight: 70.454 kg

DRUGS (10)
  1. NIFEDIPINE [Suspect]
     Indication: HYPERTENSION
  2. HUMULIN R [Concomitant]
     Indication: DIABETES MELLITUS
  3. FUROSEMIDE [Concomitant]
  4. LISINOPRIL [Concomitant]
  5. LUMIGAN [Concomitant]
  6. SIMVASTATIN [Concomitant]
  7. ISOSORBIDE DINITRATE [Concomitant]
  8. ATENOLOL [Concomitant]
  9. ALPHAGAN [Concomitant]
  10. ACETYLSALICYLIC ACID SRT [Concomitant]

REACTIONS (3)
  - CATARACT [None]
  - GLAUCOMA [None]
  - MUSCLE SPASMS [None]
